FAERS Safety Report 18649877 (Version 4)
Quarter: 2021Q1

REPORT INFORMATION
  Report Type: Spontaneous
  Country: JP (occurrence: JP)
  Receive Date: 20201222
  Receipt Date: 20210318
  Transmission Date: 20210419
  Serious: Yes (Death, Life-Threatening, Hospitalization, Other)
  Sender: FDA-Public Use
  Company Number: JP-BRISTOL-MYERS SQUIBB COMPANY-BMS-2020-109162

PATIENT
  Age: 72 Year
  Sex: Female

DRUGS (2)
  1. OPDIVO [Suspect]
     Active Substance: NIVOLUMAB
     Indication: METASTATIC RENAL CELL CARCINOMA
     Dosage: UNK
     Route: 041
  2. YERVOY [Suspect]
     Active Substance: IPILIMUMAB
     Indication: METASTATIC RENAL CELL CARCINOMA
     Dosage: UNK
     Route: 041

REACTIONS (6)
  - Immune-mediated enterocolitis [Fatal]
  - Acute kidney injury [Unknown]
  - Hyperglycaemic hyperosmolar nonketotic syndrome [Unknown]
  - Cerebral infarction [Unknown]
  - Platelet count decreased [Fatal]
  - Oesophagitis [Unknown]
